FAERS Safety Report 7337935-6 (Version None)
Quarter: 2011Q1

REPORT INFORMATION
  Report Type: 
  Country: None (occurrence: None)
  Receive Date: 20110308
  Receipt Date: 20110301
  Transmission Date: 20110831
  Serious: Yes (Hospitalization)
  Sender: FDA-Public Use
  Company Number: CA-ROCHE-763291

PATIENT
  Sex: Female

DRUGS (2)
  1. PEGASYS [Suspect]
     Route: 065
  2. RIBAVIRIN [Suspect]
     Route: 065

REACTIONS (10)
  - FATIGUE [None]
  - WEIGHT DECREASED [None]
  - DEHYDRATION [None]
  - ACTIVITIES OF DAILY LIVING IMPAIRED [None]
  - MOVEMENT DISORDER [None]
  - VOMITING [None]
  - ASTHENIA [None]
  - HAEMOGLOBIN DECREASED [None]
  - MALAISE [None]
  - BEDRIDDEN [None]
